FAERS Safety Report 17575343 (Version 4)
Quarter: 2020Q3

REPORT INFORMATION
  Report Type: Spontaneous
  Country: US (occurrence: US)
  Receive Date: 20200324
  Receipt Date: 20200729
  Transmission Date: 20201102
  Serious: No
  Sender: FDA-Public Use
  Company Number: US-HBP-2020US020346

PATIENT
  Sex: Male

DRUGS (3)
  1. HYDROXYZINE HCL [Concomitant]
     Active Substance: HYDROXYZINE HYDROCHLORIDE
  2. VALCHLOR [Suspect]
     Active Substance: MECHLORETHAMINE
     Indication: CUTANEOUS T-CELL LYMPHOMA
     Dosage: UNK, QD
     Route: 061
     Dates: end: 202003
  3. BETAMETHASONE DIPROPIONATE. [Concomitant]
     Active Substance: BETAMETHASONE DIPROPIONATE

REACTIONS (7)
  - Application site erythema [Recovered/Resolved]
  - Intentional dose omission [Unknown]
  - Dry skin [Not Recovered/Not Resolved]
  - Pruritus [Recovering/Resolving]
  - Urticaria [Recovered/Resolved]
  - Application site pain [Recovered/Resolved]
  - Application site discharge [Recovered/Resolved]
